FAERS Safety Report 6964413-6 (Version None)
Quarter: 2010Q3

REPORT INFORMATION
  Report Type: 
  Country: None (occurrence: None)
  Receive Date: 20100903
  Receipt Date: 20100823
  Transmission Date: 20110219
  Serious: Yes (Other)
  Sender: FDA-Public Use
  Company Number: US-PFIZER INC-2010106434

PATIENT
  Sex: Male
  Weight: 69.853 kg

DRUGS (2)
  1. LYRICA [Suspect]
     Indication: AKINESIA
     Dosage: 50 MG, 2X/DAY
     Route: 048
     Dates: start: 20100701
  2. LYRICA [Suspect]
     Dosage: 800MG PER DAY

REACTIONS (4)
  - INCORRECT DOSE ADMINISTERED [None]
  - IRRITABILITY [None]
  - MAJOR DEPRESSION [None]
  - MOOD ALTERED [None]
